FAERS Safety Report 10261158 (Version 1)
Quarter: 2014Q2

REPORT INFORMATION
  Report Type: Spontaneous
  Country: US (occurrence: US)
  Receive Date: 20140626
  Receipt Date: 20140626
  Transmission Date: 20141212
  Serious: No
  Sender: FDA-Public Use
  Company Number: US-BAYER-2014-094966

PATIENT
  Age: 54 Year
  Sex: Female
  Weight: 52 kg

DRUGS (2)
  1. ALEVE CAPLET [Suspect]
     Indication: ANALGESIC THERAPY
     Dosage: UNK UNK, PRN
     Route: 048
     Dates: start: 201406, end: 20140617
  2. BAYER GENUINE ASPIRIN ORIGINAL STRENGTH [Concomitant]

REACTIONS (1)
  - Flatulence [Recovered/Resolved]
